APPROVED DRUG PRODUCT: ISOPAQUE 280
Active Ingredient: CALCIUM; MEGLUMINE; METRIZOIC ACID
Strength: 0.35MG/ML;140.1MG/ML;461.8MG/ML
Dosage Form/Route: INJECTABLE;INJECTION
Application: N017506 | Product #001
Applicant: GE HEALTHCARE
Approved: Approved Prior to Jan 1, 1982 | RLD: No | RS: No | Type: DISCN